FAERS Safety Report 6720806-3 (Version None)
Quarter: 2010Q2

REPORT INFORMATION
  Report Type: 
  Country: None (occurrence: None)
  Receive Date: 20100512
  Receipt Date: 20100503
  Transmission Date: 20101027
  Serious: No
  Sender: FDA-Public Use
  Company Number: US-BIOGENIDEC-2010BI015128

PATIENT
  Age: 41 Year
  Sex: Female

DRUGS (1)
  1. TYSABRI [Suspect]
     Indication: MULTIPLE SCLEROSIS
     Route: 042
     Dates: start: 20100426

REACTIONS (19)
  - ABDOMINAL PAIN UPPER [None]
  - BALANCE DISORDER [None]
  - BRONCHIAL HYPERREACTIVITY [None]
  - BURNING SENSATION [None]
  - COORDINATION ABNORMAL [None]
  - COUGH [None]
  - DIZZINESS [None]
  - DYSPAREUNIA [None]
  - GAIT DISTURBANCE [None]
  - HYPOAESTHESIA [None]
  - MIGRAINE [None]
  - MUSCULAR WEAKNESS [None]
  - NAUSEA [None]
  - REFLUX LARYNGITIS [None]
  - SENSORY DISTURBANCE [None]
  - STRESS [None]
  - VAGINAL DISORDER [None]
  - VULVOVAGINAL DISCOMFORT [None]
  - VULVOVAGINAL PRURITUS [None]
